FAERS Safety Report 20670907 (Version 1)
Quarter: 2022Q2

REPORT INFORMATION
  Report Type: Spontaneous
  Country: FR (occurrence: FR)
  Receive Date: 20220404
  Receipt Date: 20220404
  Transmission Date: 20220720
  Serious: Yes (Other)
  Sender: FDA-Public Use
  Company Number: FR-ABBVIE-22K-056-4341858-00

PATIENT
  Sex: Female

DRUGS (3)
  1. VALPROATE SODIUM [Suspect]
     Active Substance: VALPROATE SODIUM
     Indication: Epilepsy
     Dosage: 4 DOSAGE FORMS
     Route: 048
     Dates: start: 201311
  2. KEPPRA [Suspect]
     Active Substance: LEVETIRACETAM
     Indication: Epilepsy
     Route: 048
     Dates: start: 201311
  3. KEPPRA [Suspect]
     Active Substance: LEVETIRACETAM
     Dosage: DOSE INCREASED 750 MG IN THE MORNING AND IN THE EVENING
     Route: 048

REACTIONS (3)
  - Confusional state [Unknown]
  - Headache [Unknown]
  - Epilepsy [Unknown]

NARRATIVE: CASE EVENT DATE: 20131101
